FAERS Safety Report 11125167 (Version 2)
Quarter: 2015Q2

REPORT INFORMATION
  Report Type: Spontaneous
  Country: US (occurrence: US)
  Receive Date: 20150520
  Receipt Date: 20150529
  Transmission Date: 20150821
  Serious: Yes (Other)
  Sender: FDA-Public Use
  Company Number: US-TEVA-560846USA

PATIENT
  Age: 70 Year
  Sex: Female

DRUGS (1)
  1. COPAXONE [Suspect]
     Active Substance: GLATIRAMER ACETATE
     Indication: MULTIPLE SCLEROSIS
     Dates: start: 20141018

REACTIONS (8)
  - Gait disturbance [Unknown]
  - Back pain [Unknown]
  - Arterial occlusive disease [Unknown]
  - Dysstasia [Unknown]
  - Malaise [Unknown]
  - Angiopathy [Unknown]
  - Drug ineffective [Unknown]
  - Malaise [Unknown]

NARRATIVE: CASE EVENT DATE: 201504
